FAERS Safety Report 22763241 (Version 2)
Quarter: 2024Q2

REPORT INFORMATION
  Report Type: Spontaneous
  Country: DE (occurrence: DE)
  Receive Date: 20230729
  Receipt Date: 20240527
  Transmission Date: 20240716
  Serious: Yes (Other)
  Sender: FDA-Public Use
  Company Number: DE-002147023-NVSC2022DE281068

PATIENT
  Sex: Male
  Weight: 70 kg

DRUGS (29)
  1. TAFINLAR [Suspect]
     Active Substance: DABRAFENIB MESYLATE
     Indication: Malignant melanoma
     Dosage: 75 MG, BID (2 X 75 MG) (1-0-1)
     Route: 065
     Dates: start: 20220913, end: 20220925
  2. TAFINLAR [Suspect]
     Active Substance: DABRAFENIB MESYLATE
     Indication: Metastases to lung
     Dosage: 75 MG, BID (2 X 75 MG) (1-0-1)
     Route: 065
     Dates: start: 20221011, end: 20221027
  3. TAFINLAR [Suspect]
     Active Substance: DABRAFENIB MESYLATE
     Dosage: 75 MG, BID (2 X 75 MG) (1-0-1)
     Route: 065
     Dates: start: 20221106, end: 20221213
  4. TAFINLAR [Suspect]
     Active Substance: DABRAFENIB MESYLATE
     Dosage: 75 MG, BID (2 X 75 MG) (1-0-1)
     Route: 065
     Dates: start: 20221228, end: 20230111
  5. TAFINLAR [Suspect]
     Active Substance: DABRAFENIB MESYLATE
     Dosage: 100 MG, BID (1-0-1)
     Route: 065
     Dates: start: 20230127, end: 20230310
  6. TAFINLAR [Suspect]
     Active Substance: DABRAFENIB MESYLATE
     Dosage: 50 MG, BID (2 X 50 MG) (1-0-1)
     Route: 065
     Dates: start: 20230321, end: 20230403
  7. TAFINLAR [Suspect]
     Active Substance: DABRAFENIB MESYLATE
     Dosage: 50 MG, BID (2 X 50 MG) (1-0-1)
     Route: 065
     Dates: start: 20230414, end: 20230424
  8. TAFINLAR [Suspect]
     Active Substance: DABRAFENIB MESYLATE
     Dosage: 50 MG, BID (2 X 50 MG) (1-0-1)
     Route: 065
     Dates: start: 20230506, end: 20230517
  9. TAFINLAR [Suspect]
     Active Substance: DABRAFENIB MESYLATE
     Dosage: 50 MG, BID (2 X 50 MG) (1-0-1)
     Route: 065
     Dates: start: 20230522, end: 20230605
  10. TAFINLAR [Suspect]
     Active Substance: DABRAFENIB MESYLATE
     Dosage: 50 MG, BID (2 X 50 MG) (1-0-1)
     Route: 065
     Dates: start: 20230613, end: 20230628
  11. TAFINLAR [Suspect]
     Active Substance: DABRAFENIB MESYLATE
     Dosage: 50 MG, BID (2 X 50 MG) (1-0-1)
     Route: 065
     Dates: start: 20230708, end: 20230719
  12. MEKINIST [Suspect]
     Active Substance: TRAMETINIB DIMETHYL SULFOXIDE
     Indication: Malignant melanoma
     Dosage: 2 MG, QD (0-0-1)
     Route: 065
     Dates: start: 20220913, end: 20220925
  13. MEKINIST [Suspect]
     Active Substance: TRAMETINIB DIMETHYL SULFOXIDE
     Indication: Metastases to lung
     Dosage: 2 MG, QD (0-0-1)
     Route: 065
     Dates: start: 20221011, end: 20221027
  14. MEKINIST [Suspect]
     Active Substance: TRAMETINIB DIMETHYL SULFOXIDE
     Dosage: 2 MG, QD (0-0-1)
     Route: 065
     Dates: start: 20221106, end: 20221213
  15. MEKINIST [Suspect]
     Active Substance: TRAMETINIB DIMETHYL SULFOXIDE
     Dosage: 2 MG, QD (0-0-1)
     Route: 065
     Dates: start: 20221228, end: 20230111
  16. MEKINIST [Suspect]
     Active Substance: TRAMETINIB DIMETHYL SULFOXIDE
     Dosage: 1.5 MG, QD (0-0-1)
     Route: 065
     Dates: start: 20230127, end: 20230310
  17. MEKINIST [Suspect]
     Active Substance: TRAMETINIB DIMETHYL SULFOXIDE
     Dosage: 0.5 MG, QD (3X 0.5 MG)
     Route: 065
     Dates: start: 20230321, end: 20230403
  18. MEKINIST [Suspect]
     Active Substance: TRAMETINIB DIMETHYL SULFOXIDE
     Dosage: 0.5 MG, QD (3X 0.5 MG)
     Route: 065
     Dates: start: 20230414, end: 20230424
  19. MEKINIST [Suspect]
     Active Substance: TRAMETINIB DIMETHYL SULFOXIDE
     Dosage: 0.5 MG, QD (3X 0.5 MG)
     Route: 065
     Dates: start: 20230506, end: 20230605
  20. MEKINIST [Suspect]
     Active Substance: TRAMETINIB DIMETHYL SULFOXIDE
     Dosage: 0.5 MG, QD (3X 0.5 MG)
     Route: 065
     Dates: start: 20230613, end: 20230628
  21. MEKINIST [Suspect]
     Active Substance: TRAMETINIB DIMETHYL SULFOXIDE
     Dosage: 0.5 MG, QD (3X 0.5 MG)
     Route: 065
     Dates: start: 20230708, end: 20230719
  22. BISOPROLOL [Concomitant]
     Active Substance: BISOPROLOL\BISOPROLOL FUMARATE
     Indication: Product used for unknown indication
     Dosage: UNK (0.5-0-0.5)
     Route: 065
     Dates: end: 202304
  23. BISOPROLOL [Concomitant]
     Active Substance: BISOPROLOL\BISOPROLOL FUMARATE
     Dosage: UNK, BID (1-0-1)
     Route: 065
     Dates: start: 202304
  24. CANDESARTAN [Concomitant]
     Active Substance: CANDESARTAN
     Indication: Product used for unknown indication
     Dosage: UNK, BID (1-0-1)
     Route: 065
  25. TORSEMIDE [Concomitant]
     Active Substance: TORSEMIDE
     Indication: Product used for unknown indication
     Dosage: UNK, PRN (0.5-0-0)
     Route: 065
  26. AMLODIPINE [Concomitant]
     Active Substance: AMLODIPINE BESYLATE
     Indication: Product used for unknown indication
     Dosage: UNK (0.5-0-0.5)
     Route: 065
     Dates: end: 20230126
  27. AMLODIPINE [Concomitant]
     Active Substance: AMLODIPINE BESYLATE
     Dosage: UNK, PRN (AS NEEDED)
     Route: 065
     Dates: start: 20230126
  28. ESOMEPRAZOLE [Concomitant]
     Active Substance: ESOMEPRAZOLE
     Indication: Product used for unknown indication
     Dosage: UNK, QD (0-0-1)
     Route: 065
  29. PREGABALIN [Concomitant]
     Active Substance: PREGABALIN
     Indication: Product used for unknown indication
     Dosage: UNK, BID (1-0-1)
     Route: 065
     Dates: start: 20230108

REACTIONS (14)
  - Arrhythmia [Unknown]
  - Chills [Recovering/Resolving]
  - Pyrexia [Unknown]
  - Myalgia [Unknown]
  - Rheumatic disorder [Unknown]
  - Hypertension [Unknown]
  - Cervicobrachial syndrome [Unknown]
  - Cough [Unknown]
  - Infection [Unknown]
  - Abscess [Unknown]
  - Pain [Unknown]
  - Arthralgia [Unknown]
  - Pain in extremity [Unknown]
  - Product dose omission issue [Recovered/Resolved]

NARRATIVE: CASE EVENT DATE: 20220101
